FAERS Safety Report 5235921-3 (Version None)
Quarter: 2007Q1

REPORT INFORMATION
  Report Type: 
  Country: None (occurrence: None)
  Receive Date: 20061208
  Receipt Date: 20060420
  Transmission Date: 20070707
  Serious: Yes (Other)
  Sender: FDA-Public Use
  Company Number: 2006UW07141

PATIENT
  Age: 56 Year
  Sex: Female
  Weight: 63.502 kg

DRUGS (3)
  1. CRESTOR [Suspect]
     Indication: BLOOD CHOLESTEROL INCREASED
     Dosage: 10 MG DAILY PO
     Route: 048
  2. NEXIUM ORAL [Concomitant]
  3. PAXIL [Concomitant]

REACTIONS (3)
  - CHEST DISCOMFORT [None]
  - HEART RATE IRREGULAR [None]
  - PANIC REACTION [None]
